FAERS Safety Report 5677301-2 (Version None)
Quarter: 2008Q1

REPORT INFORMATION
  Report Type: 
  Country: None (occurrence: None)
  Receive Date: 20080320
  Receipt Date: 20080320
  Transmission Date: 20080703
  Serious: Yes (Life-Threatening, Hospitalization)
  Sender: FDA-Public Use
  Company Number: None

PATIENT
  Age: 83 Year
  Sex: Male
  Weight: 58.4 kg

DRUGS (9)
  1. BACTRIM DS [Suspect]
  2. ALBUTEROL [Concomitant]
  3. ASPIRIN [Concomitant]
  4. ATENOLOL [Concomitant]
  5. ENALAPRIL MALEATE [Concomitant]
  6. FLUNISOLIDE [Concomitant]
  7. LORATADINE [Concomitant]
  8. SIMVASTATIN [Concomitant]
  9. TERAZOSIN HCL [Concomitant]

REACTIONS (1)
  - THROMBOCYTOPENIA [None]
